FAERS Safety Report 20589642 (Version 2)
Quarter: 2022Q1

REPORT INFORMATION
  Report Type: Spontaneous
  Country: BR (occurrence: BR)
  Receive Date: 20220314
  Receipt Date: 20220316
  Transmission Date: 20220423
  Serious: Yes (Death)
  Sender: FDA-Public Use
  Company Number: BR-CELGENE-BRA-20220303914

PATIENT
  Age: 90 Year
  Sex: Female

DRUGS (2)
  1. REVLIMID [Suspect]
     Active Substance: LENALIDOMIDE
     Indication: Non-Hodgkin^s lymphoma
     Dosage: 10 MG
     Route: 048
  2. REVLIMID [Suspect]
     Active Substance: LENALIDOMIDE
     Indication: Plasma cell myeloma

REACTIONS (2)
  - Death [Fatal]
  - Unevaluable event [Unknown]

NARRATIVE: CASE EVENT DATE: 20220218
